FAERS Safety Report 5513815-3 (Version None)
Quarter: 2007Q4

REPORT INFORMATION
  Report Type: 
  Country: None (occurrence: None)
  Receive Date: 20071105
  Receipt Date: 20071001
  Transmission Date: 20080405
  Serious: Yes (Other)
  Sender: FDA-Public Use
  Company Number: PHEH2007US13084

PATIENT
  Sex: Female

DRUGS (1)
  1. EXELON [Suspect]
     Dosage: 4.6 MG, QD, TRANSDERMAL
     Route: 062
     Dates: start: 20070925, end: 20070928

REACTIONS (1)
  - HEART RATE INCREASED [None]
